FAERS Safety Report 14392772 (Version 1)
Quarter: 2018Q1

REPORT INFORMATION
  Report Type: Spontaneous
  Country: PL (occurrence: PL)
  Receive Date: 20180116
  Receipt Date: 20180116
  Transmission Date: 20180509
  Serious: Yes (Other)
  Sender: FDA-Public Use
  Company Number: PL-ABBVIE-18S-129-2224122-00

PATIENT
  Sex: Female

DRUGS (1)
  1. KREON TRAVIX [Suspect]
     Active Substance: PANCRELIPASE
     Indication: PRODUCT USED FOR UNKNOWN INDICATION
     Dosage: UNK
     Route: 065

REACTIONS (3)
  - Eyelid oedema [Unknown]
  - Hypotension [Unknown]
  - Diplopia [Unknown]
